FAERS Safety Report 5971500-8 (Version None)
Quarter: 2008Q4

REPORT INFORMATION
  Report Type: 
  Country: None (occurrence: None)
  Receive Date: 20081201
  Receipt Date: 20081124
  Transmission Date: 20090506
  Serious: Yes (Hospitalization)
  Sender: FDA-Public Use
  Company Number: FR-BRISTOL-MYERS SQUIBB COMPANY-14421143

PATIENT
  Age: 83 Year
  Sex: Female

DRUGS (19)
  1. COUMADIN [Suspect]
     Indication: DEEP VEIN THROMBOSIS
     Dates: start: 20070901
  2. MIANSERIN [Concomitant]
  3. ISOPTIN [Concomitant]
  4. COZAAR [Concomitant]
  5. PRAVASTATIN [Concomitant]
  6. OMEPRAZOLE [Concomitant]
  7. FUROSEMIDE [Concomitant]
  8. DIFFU-K [Concomitant]
  9. NOLVADEX [Concomitant]
  10. AERIUS [Concomitant]
  11. ZOPICLONE [Concomitant]
  12. SINGULAIR [Concomitant]
  13. SYMBICORT [Concomitant]
  14. ATROVENT [Concomitant]
  15. BRICANYL [Concomitant]
  16. IXPRIM [Concomitant]
  17. TARDYFERON [Concomitant]
  18. SPECIAFOLDINE [Concomitant]
  19. VOLTAREN [Concomitant]

REACTIONS (4)
  - ANTICOAGULATION DRUG LEVEL ABOVE THERAPEUTIC [None]
  - FALL [None]
  - INTERNATIONAL NORMALISED RATIO INCREASED [None]
  - MUSCLE HAEMORRHAGE [None]
